FAERS Safety Report 6092149-5 (Version None)
Quarter: 2009Q1

REPORT INFORMATION
  Report Type: 
  Country: None (occurrence: None)
  Receive Date: 20090219
  Receipt Date: 20081027
  Transmission Date: 20090719
  Serious: No
  Sender: FDA-Public Use
  Company Number: WAES 0809USA03852

PATIENT
  Age: 81 Year
  Sex: Female

DRUGS (14)
  1. JANUVIA [Suspect]
     Indication: TYPE 2 DIABETES MELLITUS
     Dosage: 100 MG/DAILY/PO ; 50 MG/DAILY/PO
     Route: 048
     Dates: start: 20080909, end: 20080901
  2. JANUVIA [Suspect]
     Indication: TYPE 2 DIABETES MELLITUS
     Dosage: 100 MG/DAILY/PO ; 50 MG/DAILY/PO
     Route: 048
     Dates: start: 20080901
  3. ACTOS [Concomitant]
  4. LENOXIN [Concomitant]
  5. MIACALCIN [Concomitant]
  6. PEPCID [Concomitant]
  7. TYLENOL [Concomitant]
  8. ZOCOR [Concomitant]
  9. ASPIRIN [Concomitant]
  10. ATENOLOL [Concomitant]
  11. CALCIUM (UNSPECIFIED) (+) VITAMI [Concomitant]
  12. CERIUM NITRATE (+) SULFADIAZINE, [Concomitant]
  13. GLIPIZIDE [Concomitant]
  14. LISINOPRIL [Concomitant]

REACTIONS (1)
  - BLOOD GLUCOSE INCREASED [None]
